FAERS Safety Report 9385917 (Version 2)
Quarter: 2013Q3

REPORT INFORMATION
  Report Type: Report from Study
  Country: US (occurrence: US)
  Receive Date: 20130705
  Receipt Date: 20130712
  Transmission Date: 20140515
  Serious: Yes (Hospitalization)
  Sender: FDA-Public Use
  Company Number: US-US-EMD SERONO, INC.-7221791

PATIENT
  Age: 51 Year
  Sex: Female
  Weight: 98 kg

DRUGS (2)
  1. REBIF [Suspect]
     Indication: MULTIPLE SCLEROSIS
     Route: 058
     Dates: start: 20060501
  2. MOTRIN [Concomitant]
     Indication: PREMEDICATION

REACTIONS (8)
  - Drug hypersensitivity [Recovered/Resolved]
  - Injection site vesicles [Not Recovered/Not Resolved]
  - Injection site injury [Not Recovered/Not Resolved]
  - Injection site hypoaesthesia [Unknown]
  - Injection site erythema [Unknown]
  - Injection site infection [Not Recovered/Not Resolved]
  - Blood pressure abnormal [Recovering/Resolving]
  - Injection site swelling [Not Recovered/Not Resolved]
